FAERS Safety Report 4498906-0 (Version None)
Quarter: 2004Q4

REPORT INFORMATION
  Report Type: 
  Country: None (occurrence: None)
  Receive Date: 20041108
  Receipt Date: 20030722
  Transmission Date: 20050328
  Serious: Yes (Other)
  Sender: FDA-Public Use
  Company Number: ADE03-066

PATIENT
  Sex: Female
  Weight: 188 kg

DRUGS (6)
  1. COLOCORT [Suspect]
     Indication: COLITIS
     Dosage: 100 MG, DAILY, RECTAL
     Route: 054
     Dates: start: 20030501, end: 20030701
  2. PREDNISONE [Concomitant]
  3. PHENOBARBITAL TAB [Concomitant]
  4. VASOTEC [Concomitant]
  5. CALCIUM CARBONATE [Concomitant]
  6. LEVSIN (HYOSCAMINE) [Concomitant]

REACTIONS (4)
  - COLITIS [None]
  - FAECAL INCONTINENCE [None]
  - HAEMORRHOIDS [None]
  - HEART RATE INCREASED [None]
